FAERS Safety Report 4540931-5 (Version None)
Quarter: 2004Q4

REPORT INFORMATION
  Report Type: 
  Country: None (occurrence: None)
  Receive Date: 20041229
  Receipt Date: 20041215
  Transmission Date: 20050328
  Serious: Yes (Other)
  Sender: FDA-Public Use
  Company Number: JP-GLAXOSMITHKLINE-B0362041A

PATIENT
  Age: 34 Year
  Sex: Male

DRUGS (3)
  1. ZEFIX [Suspect]
     Indication: HEPATITIS B
     Dosage: 100MG PER DAY
     Route: 048
     Dates: start: 20011207
  2. URSODESOXYCHOLIC ACID [Concomitant]
     Route: 048
     Dates: start: 20021127
  3. STRONG NEO MINOPHAGEN C [Concomitant]
     Route: 042
     Dates: start: 20040220

REACTIONS (6)
  - ALANINE AMINOTRANSFERASE INCREASED [None]
  - ASPARTATE AMINOTRANSFERASE INCREASED [None]
  - BLOOD BILIRUBIN INCREASED [None]
  - HEPATITIS B [None]
  - JAUNDICE [None]
  - PATHOGEN RESISTANCE [None]
